FAERS Safety Report 8281317-X (Version None)
Quarter: 2012Q2

REPORT INFORMATION
  Report Type: 
  Country: None (occurrence: None)
  Receive Date: 20120413
  Receipt Date: 20120411
  Transmission Date: 20120825
  Serious: Yes (Other)
  Sender: FDA-Public Use
  Company Number: US-PFIZER INC-2012090639

PATIENT
  Sex: Male
  Weight: 81.633 kg

DRUGS (3)
  1. LYRICA [Suspect]
     Indication: PELVIC FRACTURE
     Dosage: UNK, 2X/DAY
     Route: 048
     Dates: start: 20120301
  2. LYRICA [Suspect]
     Indication: PAIN IN EXTREMITY
  3. METFORMIN [Concomitant]
     Indication: DIABETES MELLITUS
     Dosage: UNK

REACTIONS (1)
  - PAIN [None]
